FAERS Safety Report 13623716 (Version 1)
Quarter: 2017Q2

REPORT INFORMATION
  Report Type: Spontaneous
  Country: US (occurrence: US)
  Receive Date: 20170607
  Receipt Date: 20170607
  Transmission Date: 20170830
  Serious: No
  Sender: FDA-Public Use
  Company Number: US-PURDUE-USA-2016-0134358

PATIENT
  Age: 51 Year
  Sex: Female

DRUGS (2)
  1. BUTRANS [Suspect]
     Active Substance: BUPRENORPHINE
     Dosage: 5 MCG/HR, WEEKLY
     Route: 062
     Dates: start: 201609, end: 201609
  2. BUTRANS [Suspect]
     Active Substance: BUPRENORPHINE
     Indication: PAIN
     Dosage: (2X 5 MCG/HR) 10 MCG/HR, WEEKLY
     Route: 062
     Dates: start: 201609

REACTIONS (4)
  - Application site vesicles [Not Recovered/Not Resolved]
  - Inadequate analgesia [Recovered/Resolved]
  - Application site pain [Not Recovered/Not Resolved]
  - Application site erythema [Not Recovered/Not Resolved]

NARRATIVE: CASE EVENT DATE: 201609
